FAERS Safety Report 21116474 (Version 1)
Quarter: 2022Q3

REPORT INFORMATION
  Report Type: Other
  Country: NL (occurrence: NL)
  Receive Date: 20220722
  Receipt Date: 20220722
  Transmission Date: 20221027
  Serious: No
  Sender: FDA-Public Use
  Company Number: None

PATIENT
  Age: 31 Year
  Sex: Female
  Weight: 46 kg

DRUGS (3)
  1. LEVONORGESTREL [Suspect]
     Active Substance: LEVONORGESTREL
     Indication: Product used for unknown indication
     Dosage: 1.5 MILLIGRAM, UNKNOWN (EENMALIG)
     Route: 065
     Dates: start: 20211002
  2. METHYLPHENIDATE HYDROCHLORIDE [Concomitant]
     Active Substance: METHYLPHENIDATE HYDROCHLORIDE
     Indication: Product used for unknown indication
     Dosage: TABLET, 10 MG (MILLIGRAM)
     Route: 065
  3. COVID-19 VACCINE [Concomitant]
     Indication: Immunisation
     Dosage: INJECTIEVLOEISTOF
     Route: 065

REACTIONS (1)
  - Back pain [Not Recovered/Not Resolved]

NARRATIVE: CASE EVENT DATE: 20211003
